FAERS Safety Report 9263877 (Version 1)
Quarter: 2013Q2

REPORT INFORMATION
  Report Type: Spontaneous
  Country: US (occurrence: US)
  Receive Date: 20130430
  Receipt Date: 20130430
  Transmission Date: 20140414
  Serious: No
  Sender: FDA-Public Use
  Company Number: US-BAYER-2013-054181

PATIENT
  Age: 91 Year
  Sex: Female
  Weight: 61.22 kg

DRUGS (8)
  1. ALEVE CAPLET [Suspect]
     Indication: ANALGESIC THERAPY
     Dosage: 1 DF, TID
     Route: 048
     Dates: start: 2012
  2. CITRACAL CALCIUM + D SLOW RELEASE 1200 [Concomitant]
  3. PHILLIPS^ COLON HEALTH [Concomitant]
  4. PHILLIPS STOOL SOFTENER BULK DOCUSATE [Concomitant]
  5. GERITOL [FERRIC AMMONIUM CITRATE,METHIONINE,VITAMIN B NOS] [Concomitant]
  6. EVISTA [RALOXIFENE HYDROCHLORIDE] [Concomitant]
  7. FOSAMAX [Concomitant]
  8. LEVOTHROID [Concomitant]

REACTIONS (2)
  - Drug ineffective [None]
  - Incorrect drug administration duration [None]
